FAERS Safety Report 21052186 (Version 1)
Quarter: 2022Q3

REPORT INFORMATION
  Report Type: Spontaneous
  Country: GE (occurrence: GE)
  Receive Date: 20220707
  Receipt Date: 20220707
  Transmission Date: 20221026
  Serious: Yes (Death)
  Sender: FDA-Public Use
  Company Number: GE-NOVARTISPH-NVSC2022GE154091

PATIENT
  Age: 23 Year
  Sex: Female

DRUGS (2)
  1. SECUKINUMAB [Suspect]
     Active Substance: SECUKINUMAB
     Indication: Psoriasis
     Dosage: 300 MG, UNKNOWN
     Route: 065
     Dates: start: 202201, end: 202202
  2. SECUKINUMAB [Suspect]
     Active Substance: SECUKINUMAB
     Indication: Psoriatic arthropathy

REACTIONS (4)
  - Haemorrhagic stroke [Fatal]
  - Renal failure [Fatal]
  - Lupus nephritis [Fatal]
  - Endocarditis [Fatal]

NARRATIVE: CASE EVENT DATE: 20220501
